FAERS Safety Report 7937105-4 (Version None)
Quarter: 2011Q4

REPORT INFORMATION
  Report Type: 
  Country: None (occurrence: None)
  Receive Date: 20111123
  Receipt Date: 20111115
  Transmission Date: 20120403
  Serious: Yes (Hospitalization)
  Sender: FDA-Public Use
  Company Number: CA-JNJFOC-20110310075

PATIENT
  Sex: Female
  Weight: 76 kg

DRUGS (8)
  1. REMICADE [Suspect]
     Route: 042
     Dates: start: 20071001
  2. IMURAN [Concomitant]
     Route: 048
     Dates: start: 20060101
  3. REMICADE [Suspect]
     Indication: CROHN'S DISEASE
     Route: 042
     Dates: start: 20080501
  4. ASPIRIN [Concomitant]
  5. BENADRYL [Concomitant]
     Indication: PREMEDICATION
     Route: 048
  6. PREDNISONE TAB [Concomitant]
     Indication: PREMEDICATION
     Route: 048
  7. VITAMIN [Concomitant]
     Route: 065
  8. VENTOLIN [Concomitant]
     Route: 065

REACTIONS (3)
  - HOSPITALISATION [None]
  - MATERNAL EXPOSURE DURING PREGNANCY [None]
  - PREGNANCY [None]
